FAERS Safety Report 13656550 (Version 10)
Quarter: 2018Q3

REPORT INFORMATION
  Report Type: Spontaneous
  Country: US (occurrence: US)
  Receive Date: 20170615
  Receipt Date: 20180808
  Transmission Date: 20181010
  Serious: Yes (Death, Life-Threatening, Hospitalization)
  Sender: FDA-Public Use
  Company Number: US-PFIZER INC-2017256930

PATIENT
  Age: 8 Day
  Sex: Female
  Weight: 2.8 kg

DRUGS (8)
  1. EPINEPHRINE. [Concomitant]
     Active Substance: EPINEPHRINE
     Dosage: 0.05 MCG/KG/MIN
     Route: 042
  2. NITROGLYCERIN. [Concomitant]
     Active Substance: NITROGLYCERIN
     Dosage: 0.5 UG/KG/MIN
     Route: 042
  3. MILRINONE [Concomitant]
     Active Substance: MILRINONE
     Dosage: 0.5 MCG/KG/MIN
     Route: 042
  4. DEXMEDETOMIDINE HYDROCHLORIDE. [Suspect]
     Active Substance: DEXMEDETOMIDINE HYDROCHLORIDE
     Dosage: INCREASED TO 1 UG/KG/H
     Route: 042
  5. AMIODARONE HCL [Suspect]
     Active Substance: AMIODARONE HYDROCHLORIDE
     Indication: JUNCTIONAL ECTOPIC TACHYCARDIA
     Dosage: 5 MG/KG, OVER 1 HOUR
     Route: 040
  6. DEXMEDETOMIDINE HYDROCHLORIDE. [Suspect]
     Active Substance: DEXMEDETOMIDINE HYDROCHLORIDE
     Dosage: 0.5 MCG/KG/H (NO LOADING DOSE)
     Route: 042
  7. VASOPRESSIN. [Concomitant]
     Active Substance: VASOPRESSIN
     Dosage: 0.0003 U/KG/MIN
  8. VASOPRESSIN. [Concomitant]
     Active Substance: VASOPRESSIN
     Dosage: 0.0006 U/KG/MIN

REACTIONS (5)
  - Drug administered to patient of inappropriate age [Unknown]
  - Right ventricular dysfunction [Fatal]
  - Hypotension [Unknown]
  - Respiratory failure [Fatal]
  - Cardiac arrest [Unknown]
